FAERS Safety Report 7157439-3 (Version None)
Quarter: 2010Q4

REPORT INFORMATION
  Report Type: 
  Country: None (occurrence: None)
  Receive Date: 20101214
  Receipt Date: 20101207
  Transmission Date: 20110411
  Serious: Yes (Other)
  Sender: FDA-Public Use
  Company Number: A0898446A

PATIENT
  Sex: Female

DRUGS (7)
  1. TYKERB [Suspect]
     Indication: BREAST CANCER METASTATIC
     Dosage: 1250MG PER DAY
     Route: 048
     Dates: start: 20091028, end: 20101117
  2. DECADRON [Concomitant]
  3. NEURONTIN [Concomitant]
  4. ATIVAN [Concomitant]
  5. DILAUDID [Concomitant]
  6. NEXIUM [Concomitant]
  7. IMOVANE [Concomitant]

REACTIONS (2)
  - BREAST CANCER [None]
  - FACIAL NERVE DISORDER [None]
